FAERS Safety Report 17712544 (Version 1)
Quarter: 2020Q2

REPORT INFORMATION
  Report Type: Spontaneous
  Country: FR (occurrence: FR)
  Receive Date: 20200427
  Receipt Date: 20200427
  Transmission Date: 20200714
  Serious: Yes (Other)
  Sender: FDA-Public Use
  Company Number: FR-AMGEN-FRASP2020065710

PATIENT
  Age: 83 Year
  Sex: Male

DRUGS (1)
  1. PANITUMUMAB [Suspect]
     Active Substance: PANITUMUMAB
     Indication: SQUAMOUS CELL CARCINOMA
     Dosage: 6 MILLIGRAM/KILOGRAM, Q2WK FOR ATLEAST 1 HOUR
     Route: 042

REACTIONS (3)
  - Off label use [Unknown]
  - Tumour excision [Recovering/Resolving]
  - Therapy partial responder [Unknown]
